FAERS Safety Report 15661857 (Version 1)
Quarter: 2018Q4

REPORT INFORMATION
  Report Type: Other
  Country: US (occurrence: US)
  Receive Date: 20181127
  Receipt Date: 20181127
  Transmission Date: 20190205
  Serious: Yes (Hospitalization)
  Sender: FDA-Public Use
  Company Number: US-NEPHRON PHARMACEUTICALS CORPORATION-2059308

PATIENT
  Age: 76 Year
  Sex: Male

DRUGS (3)
  1. FLUIDS (NO DESCRIPTION PROVIDED) [Concomitant]
  2. ALBUTEROL SULFATE INHALATION SOLUTION, 0.083% [Suspect]
     Active Substance: ALBUTEROL SULFATE
     Indication: HYPERKALAEMIA
     Route: 055
  3. PHENYLEPHRINE [Concomitant]
     Active Substance: PHENYLEPHRINE\PHENYLEPHRINE HYDROCHLORIDE

REACTIONS (7)
  - Hypotension [Recovering/Resolving]
  - Tachycardia [Recovering/Resolving]
  - Tremor [Unknown]
  - Shock [Unknown]
  - Lactic acidosis [Unknown]
  - Product administration error [Unknown]
  - Anxiety [Unknown]
